FAERS Safety Report 6555241-4 (Version None)
Quarter: 2010Q1

REPORT INFORMATION
  Report Type: 
  Country: None (occurrence: None)
  Receive Date: 20100128
  Receipt Date: 20081204
  Transmission Date: 20100710
  Serious: No
  Sender: FDA-Public Use
  Company Number: A0760048A

PATIENT
  Sex: Female

DRUGS (11)
  1. WELLBUTRIN [Suspect]
     Dosage: 150MG VARIABLE DOSE
     Route: 048
  2. REMERON [Suspect]
     Indication: INCREASED APPETITE
  3. XANAX [Suspect]
     Indication: INCREASED APPETITE
     Dosage: 3MG AT NIGHT
     Route: 048
  4. PREDNISONE [Concomitant]
  5. ZANTAC [Concomitant]
     Dosage: 300MG PER DAY
     Route: 048
  6. BENADRYL [Concomitant]
  7. TRAMADOL [Concomitant]
  8. IBUPROFEN [Concomitant]
  9. TYLENOL ES [Concomitant]
  10. IPRATROPIUM [Concomitant]
  11. UNSPECIFIED MEDICATION [Concomitant]

REACTIONS (21)
  - ABNORMAL DREAMS [None]
  - BRUXISM [None]
  - CHEST DISCOMFORT [None]
  - CONSTIPATION [None]
  - DECREASED APPETITE [None]
  - DEHYDRATION [None]
  - DRUG INEFFECTIVE [None]
  - DYSPNOEA [None]
  - FATIGUE [None]
  - GLOSSODYNIA [None]
  - HEADACHE [None]
  - HUNGER [None]
  - INSOMNIA [None]
  - LACRIMATION INCREASED [None]
  - MYALGIA [None]
  - OROPHARYNGEAL PAIN [None]
  - PAIN [None]
  - RESTLESSNESS [None]
  - RHINORRHOEA [None]
  - VOMITING [None]
  - WITHDRAWAL SYNDROME [None]
